FAERS Safety Report 8924913 (Version 2)
Quarter: 2013Q2

REPORT INFORMATION
  Report Type: Spontaneous
  Country: US (occurrence: US)
  Receive Date: 20121126
  Receipt Date: 20130617
  Transmission Date: 20140414
  Serious: Yes (Hospitalization, Other)
  Sender: FDA-Public Use
  Company Number: US-BAYER-2012-121386

PATIENT
  Age: 38 Year
  Sex: Female
  Weight: 61.22 kg

DRUGS (4)
  1. YAZ [Suspect]
  2. ZOLOFT [Concomitant]
     Indication: ANXIETY
     Dosage: UNK
     Dates: start: 201104, end: 201202
  3. ZOLOFT [Concomitant]
     Indication: DEPRESSION
     Dosage: UNK
     Dates: start: 201210
  4. EXCEDRIN MIGRAINE [Concomitant]
     Dosage: UNK
     Dates: start: 20111225

REACTIONS (13)
  - Pulmonary embolism [Recovered/Resolved]
  - Deep vein thrombosis [None]
  - Anxiety [None]
  - Injury [Recovered/Resolved]
  - Pain [None]
  - Fear [None]
  - Anhedonia [None]
  - Chest pain [Recovered/Resolved]
  - Nausea [Recovered/Resolved]
  - Back pain [Recovered/Resolved]
  - Headache [None]
  - Fatigue [Recovered/Resolved]
  - Pain [None]
